FAERS Safety Report 10419113 (Version 2)
Quarter: 2014Q4

REPORT INFORMATION
  Report Type: Spontaneous
  Country: US (occurrence: US)
  Receive Date: 20140829
  Receipt Date: 20141202
  Transmission Date: 20150528
  Serious: No
  Sender: FDA-Public Use
  Company Number: US-PFIZER INC-2014237012

PATIENT
  Sex: Female

DRUGS (2)
  1. ERYTHROMYCIN. [Suspect]
     Active Substance: ERYTHROMYCIN
     Indication: BRONCHITIS
     Dosage: 2X/DAY
  2. MORPHINE SULFATE. [Suspect]
     Active Substance: MORPHINE SULFATE
     Indication: URINARY TRACT INFECTION
     Dosage: 2X/DAY

REACTIONS (1)
  - Drug hypersensitivity [Recovered/Resolved]
